FAERS Safety Report 7265205-3 (Version None)
Quarter: 2011Q1

REPORT INFORMATION
  Report Type: 
  Country: None (occurrence: None)
  Receive Date: 20110131
  Receipt Date: 20110127
  Transmission Date: 20110831
  Serious: Yes (Life-Threatening)
  Sender: FDA-Public Use
  Company Number: FR-ASTRAZENECA-2011SE04827

PATIENT
  Age: 19002 Day
  Sex: Female

DRUGS (10)
  1. ZOPHREN [Concomitant]
  2. LEVOTHYROX [Concomitant]
     Route: 048
  3. ULTIVA [Suspect]
     Route: 042
     Dates: start: 20101208, end: 20101208
  4. DIPRIVAN [Suspect]
     Indication: ANAESTHESIA
     Route: 042
     Dates: start: 20101208, end: 20101208
  5. ULTIVA [Suspect]
     Indication: ANAESTHESIA
     Dosage: ONCE/SINGLE ADMINISTRATION
     Route: 042
     Dates: start: 20101207, end: 20101207
  6. DIPRIVAN [Suspect]
     Route: 042
     Dates: start: 20101207, end: 20101207
  7. ESMERON [Suspect]
     Indication: ANAESTHESIA
     Route: 042
     Dates: start: 20101208, end: 20101208
  8. LOVENOX [Concomitant]
     Route: 058
  9. XANAX [Concomitant]
     Route: 048
  10. DROPERIDOL [Concomitant]
     Route: 048

REACTIONS (1)
  - ANAPHYLACTOID SHOCK [None]
